FAERS Safety Report 8020492-9 (Version None)
Quarter: 2012Q1

REPORT INFORMATION
  Report Type: 
  Country: None (occurrence: None)
  Receive Date: 20120103
  Receipt Date: 20111221
  Transmission Date: 20120608
  Serious: Yes (Other)
  Sender: FDA-Public Use
  Company Number: CN-WATSON-2011-22617

PATIENT
  Age: 12 Year
  Sex: Female

DRUGS (1)
  1. CEFAZOLIN SODIUM                   09 [Suspect]
     Indication: PHARYNGITIS

REACTIONS (1)
  - PEMPHIGUS [None]
